FAERS Safety Report 8073742-7 (Version None)
Quarter: 2012Q1

REPORT INFORMATION
  Report Type: 
  Country: None (occurrence: None)
  Receive Date: 20120126
  Receipt Date: 20120116
  Transmission Date: 20120608
  Serious: Yes (Hospitalization)
  Sender: FDA-Public Use
  Company Number: ES-ROCHE-1031794

PATIENT
  Sex: Female
  Weight: 62 kg

DRUGS (2)
  1. ASPIRIN [Concomitant]
  2. MYCOPHENOLATE MOFETIL (CELLCEPT) [Suspect]
     Indication: PRODUCT USED FOR UNKNOWN INDICATION
     Dates: start: 20110218

REACTIONS (1)
  - PULMONARY EMBOLISM [None]
